FAERS Safety Report 19232354 (Version 1)
Quarter: 2021Q2

REPORT INFORMATION
  Report Type: Report from Study
  Country: CR (occurrence: CR)
  Receive Date: 20210507
  Receipt Date: 20210507
  Transmission Date: 20210717
  Serious: Yes (Disabling, Other)
  Sender: FDA-Public Use
  Company Number: PHHY2016CR077476

PATIENT
  Sex: Male

DRUGS (2)
  1. TIZANIDINE. [Concomitant]
     Active Substance: TIZANIDINE
     Indication: MUSCLE SPASMS
     Dosage: 4 MG, QHS
     Route: 065
  2. GILENYA [Suspect]
     Active Substance: FINGOLIMOD HYDROCHLORIDE
     Indication: RELAPSING-REMITTING MULTIPLE SCLEROSIS
     Dosage: 0.5 MG, QD (IN THE MORNING)
     Route: 048
     Dates: start: 20150616

REACTIONS (13)
  - Mental disorder [Unknown]
  - Balance disorder [Unknown]
  - Urinary tract infection bacterial [Unknown]
  - Malaise [Unknown]
  - Feeling hot [Unknown]
  - Infection [Recovering/Resolving]
  - Speech disorder [Recovering/Resolving]
  - Asthenia [Unknown]
  - Movement disorder [Unknown]
  - Multiple sclerosis [Unknown]
  - Drooling [Recovering/Resolving]
  - Disturbance in attention [Unknown]
  - Fatigue [Unknown]
